FAERS Safety Report 20535306 (Version 2)
Quarter: 2022Q1

REPORT INFORMATION
  Report Type: Report from Study
  Country: CO (occurrence: CO)
  Receive Date: 20220302
  Receipt Date: 20220302
  Transmission Date: 20220423
  Serious: Yes (Hospitalization)
  Sender: FDA-Public Use
  Company Number: CO-JNJFOC-20210942630

PATIENT
  Age: 48 Year
  Sex: Male
  Weight: 54 kg

DRUGS (10)
  1. INVEGA TRINZA [Suspect]
     Active Substance: PALIPERIDONE PALMITATE
     Indication: Schizophrenia
     Dosage: LAST ADMINISTRATION OF INVEGA TRINZA 410MG: 8/JUN/2021
     Route: 030
     Dates: start: 20190909
  2. INVEGA TRINZA [Suspect]
     Active Substance: PALIPERIDONE PALMITATE
  3. INVEGA TRINZA [Suspect]
     Active Substance: PALIPERIDONE PALMITATE
  4. ALBUTEROL [Concomitant]
     Active Substance: ALBUTEROL
  5. IPRATROPIUM BROMIDE [Concomitant]
     Active Substance: IPRATROPIUM BROMIDE
  6. LEVETIRACETAM [Concomitant]
     Active Substance: LEVETIRACETAM
  7. CLOBAZAM [Concomitant]
     Active Substance: CLOBAZAM
  8. LAMOTRIGINE [Concomitant]
     Active Substance: LAMOTRIGINE
  9. LEVOMEPROMAZINE [Concomitant]
     Active Substance: LEVOMEPROMAZINE
  10. GABAPENTIN [Concomitant]
     Active Substance: GABAPENTIN

REACTIONS (1)
  - Pneumonia [Recovering/Resolving]

NARRATIVE: CASE EVENT DATE: 20210901
